FAERS Safety Report 6068590-3 (Version None)
Quarter: 2009Q1

REPORT INFORMATION
  Report Type: 
  Country: None (occurrence: None)
  Receive Date: 20090206
  Receipt Date: 20090127
  Transmission Date: 20090719
  Serious: Yes (Other)
  Sender: FDA-Public Use
  Company Number: JP-PFIZER INC-2009152341

PATIENT

DRUGS (2)
  1. UNASYN [Suspect]
     Dosage: 1.5 G, 2X/DAY
     Route: 042
     Dates: start: 20081222, end: 20081228
  2. UNASYN [Suspect]
     Dosage: 1.5 G, 1X/DAY
     Route: 042
     Dates: start: 20090102, end: 20090103

REACTIONS (1)
  - INTERSTITIAL LUNG DISEASE [None]
